FAERS Safety Report 9032145 (Version 7)
Quarter: 2013Q2

REPORT INFORMATION
  Report Type: Spontaneous
  Country: US (occurrence: US)
  Receive Date: 20130122
  Receipt Date: 20130403
  Transmission Date: 20140414
  Serious: No
  Sender: FDA-Public Use
  Company Number: US-VERTEX PHARMACEUTICALS INC.-2013-000897

PATIENT
  Age: 45 Year
  Sex: Male
  Weight: 84 kg

DRUGS (17)
  1. INCIVEK [Suspect]
     Indication: HEPATITIS C
     Dosage: 750 MG, TID
     Route: 048
     Dates: start: 20130117
  2. RIBAVIRIN [Suspect]
     Indication: HEPATITIS C
     Dosage: 600 MG, BID
     Route: 048
     Dates: start: 20130117
  3. PEGASYS [Suspect]
     Indication: HEPATITIS C
     Dosage: 180 ?G, QW
     Route: 058
     Dates: start: 20130117
  4. SERTRALINE [Concomitant]
     Indication: DEPRESSION
     Dosage: 100 MG, QD
     Route: 048
  5. SERTRALINE [Concomitant]
     Indication: STRESS
  6. SERTRALINE [Concomitant]
     Indication: ANXIETY
  7. SERTRALINE [Concomitant]
     Indication: INSOMNIA
  8. QUETIAPINE FUMARATE [Concomitant]
     Indication: SCHIZOPHRENIA
     Dosage: 300 MG, QD
     Route: 048
  9. QUETIAPINE FUMARATE [Concomitant]
     Indication: STRESS
  10. QUETIAPINE FUMARATE [Concomitant]
     Indication: ANXIETY
  11. QUETIAPINE FUMARATE [Concomitant]
     Indication: INSOMNIA
  12. CLONAZEPAM [Concomitant]
     Indication: ANXIETY
     Dosage: 1 MG, TID
     Route: 048
  13. CLONAZEPAM [Concomitant]
     Indication: STRESS
  14. VALIUM [Concomitant]
     Indication: MUSCLE SPASMS
     Dosage: UNK, PRN
     Route: 048
  15. VALIUM [Concomitant]
     Indication: ANXIETY
  16. TRAMADOL [Concomitant]
     Indication: PAIN
     Dosage: UNK, PRN
     Route: 048
  17. IBUPROFEN [Concomitant]
     Indication: PAIN
     Dosage: 400-800 MG
     Route: 048

REACTIONS (13)
  - Drug dose omission [Recovered/Resolved]
  - Dizziness [Not Recovered/Not Resolved]
  - Back pain [Not Recovered/Not Resolved]
  - Decreased appetite [Not Recovered/Not Resolved]
  - Weight decreased [Not Recovered/Not Resolved]
  - Dry skin [Not Recovered/Not Resolved]
  - Rash [Not Recovered/Not Resolved]
  - Platelet count decreased [Not Recovered/Not Resolved]
  - Pruritus generalised [Not Recovered/Not Resolved]
  - Nausea [Not Recovered/Not Resolved]
  - Haemorrhoids [Not Recovered/Not Resolved]
  - Anal pruritus [Not Recovered/Not Resolved]
  - Anorectal discomfort [Not Recovered/Not Resolved]
